FAERS Safety Report 5725773-7 (Version None)
Quarter: 2008Q2

REPORT INFORMATION
  Report Type: 
  Country: None (occurrence: None)
  Receive Date: 20080501
  Receipt Date: 20080424
  Transmission Date: 20081010
  Serious: Yes (Hospitalization)
  Sender: FDA-Public Use
  Company Number: US-GILEAD-2008-0016246

PATIENT
  Sex: Female
  Weight: 47.897 kg

DRUGS (12)
  1. LETAIRIS [Suspect]
     Indication: PULMONARY HYPERTENSION
     Route: 048
     Dates: start: 20070907
  2. REVATIO [Concomitant]
     Route: 048
  3. COUMADIN [Concomitant]
     Route: 048
  4. VENTAVIS [Concomitant]
     Dosage: 1 AMP
     Route: 055
  5. ALDACTONE [Concomitant]
     Route: 048
  6. PROCHLORPERAZINE [Concomitant]
     Route: 048
  7. VANCOMYCIN [Concomitant]
     Route: 042
  8. TYLENOL [Concomitant]
     Route: 048
  9. PREVACID [Concomitant]
     Route: 048
  10. PANCREASE [Concomitant]
     Route: 048
  11. FERROUS SULFATE TAB [Concomitant]
     Route: 048
  12. FOLIC ACID [Concomitant]
     Route: 048

REACTIONS (2)
  - DYSPNOEA [None]
  - UPPER RESPIRATORY TRACT INFECTION [None]
